FAERS Safety Report 5506574-1 (Version None)
Quarter: 2007Q4

REPORT INFORMATION
  Report Type: 
  Country: None (occurrence: None)
  Receive Date: 20071101
  Receipt Date: 20071005
  Transmission Date: 20080405
  Serious: No
  Sender: FDA-Public Use
  Company Number: 60610

PATIENT

DRUGS (1)
  1. IBUPROFEN [Suspect]

REACTIONS (2)
  - APOPTOSIS [None]
  - STEVENS-JOHNSON SYNDROME [None]
